FAERS Safety Report 6103021-6 (Version None)
Quarter: 2009Q1

REPORT INFORMATION
  Report Type: 
  Country: None (occurrence: None)
  Receive Date: 20090305
  Receipt Date: 20090304
  Transmission Date: 20090719
  Serious: Yes (Life-Threatening, Hospitalization)
  Sender: FDA-Public Use
  Company Number: PHHO2007US17533

PATIENT
  Sex: Female
  Weight: 87 kg

DRUGS (3)
  1. LOTREL [Suspect]
     Indication: HYPERTENSION
     Dosage: UNK, LEVEL 3
     Route: 048
  2. ACTOS [Concomitant]
  3. METFORMIN HCL [Concomitant]

REACTIONS (11)
  - BLOOD CREATININE INCREASED [None]
  - BLOOD POTASSIUM INCREASED [None]
  - BLOOD UREA INCREASED [None]
  - DIALYSIS [None]
  - DIARRHOEA [None]
  - DISEASE PROGRESSION [None]
  - HYPERKALAEMIA [None]
  - NAUSEA [None]
  - RENAL ARTERY STENOSIS [None]
  - RENAL FAILURE ACUTE [None]
  - VOMITING [None]
